FAERS Safety Report 6440659-0 (Version None)
Quarter: 2009Q4

REPORT INFORMATION
  Report Type: 
  Country: None (occurrence: None)
  Receive Date: 20091116
  Receipt Date: 20091111
  Transmission Date: 20100525
  Serious: Yes (Death, Hospitalization)
  Sender: FDA-Public Use
  Company Number: PHHO2009KR14017

PATIENT
  Sex: Male
  Weight: 43 kg

DRUGS (1)
  1. RAD 666 RAD+TAB [Suspect]
     Indication: GASTRIC CANCER
     Dosage: 10MG/ DAY
     Route: 048
     Dates: start: 20090925, end: 20091103

REACTIONS (7)
  - GASTROINTESTINAL HAEMORRHAGE [None]
  - HAEMATEMESIS [None]
  - LUNG CONSOLIDATION [None]
  - MALIGNANT NEOPLASM PROGRESSION [None]
  - PNEUMONIA [None]
  - RESPIRATORY ALKALOSIS [None]
  - RESPIRATORY FAILURE [None]
